FAERS Safety Report 19749399 (Version 1)
Quarter: 2021Q3

REPORT INFORMATION
  Report Type: Spontaneous
  Country: US (occurrence: US)
  Receive Date: 20210826
  Receipt Date: 20210826
  Transmission Date: 20211014
  Serious: Yes (Other)
  Sender: FDA-Public Use
  Company Number: US-ARBONNE INTERNATIONAL, LLC-2115669

PATIENT
  Age: 32 Year
  Sex: Female
  Weight: 68.18 kg

DRUGS (6)
  1. ARBONNE AGEWELL REFRESHING TONING MIST WITH VITAMIN B3 [COSMETICS] [Suspect]
     Active Substance: COSMETICS
     Route: 061
     Dates: start: 20210324, end: 20210325
  2. ARBONNE AGEWELL ENRICHING EYE CREAM WITH CAFFEINE + BAKUCHIOL [COSMETICS] [Suspect]
     Active Substance: COSMETICS
     Route: 061
     Dates: start: 20210324, end: 20210325
  3. ARBONNE AGEWELL INTENSE REPAIRING NIGHT CREAM WITH 2% BAKUCHIOL [COSMETICS] [Suspect]
     Active Substance: COSMETICS
     Route: 061
     Dates: start: 20210324, end: 20210325
  4. ARBONNE AGEWELL MOISTURE RESTORING BROAD SPECTRUM SPF 15 SUNSCREEN [Suspect]
     Active Substance: ZINC OXIDE
     Route: 061
     Dates: start: 20210324, end: 20210325
  5. ARBONNE AGEWELL SILKY CLEANSER WITH VEGAN SURFACTANTS [COSMETICS] [Suspect]
     Active Substance: COSMETICS
     Route: 061
     Dates: start: 20210324, end: 20210325
  6. ARBONNE AGEWELL COLLAGEN NURTURING SERUM WITH 2% BAKUCHIOL [COSMETICS] [Suspect]
     Active Substance: COSMETICS
     Route: 061
     Dates: start: 20210324, end: 20210325

REACTIONS (5)
  - Urticaria [Recovered/Resolved]
  - Pruritus [Recovered/Resolved]
  - Swollen tongue [Recovered/Resolved]
  - Anaphylactic shock [Recovered/Resolved]
  - Pharyngeal swelling [Recovered/Resolved]

NARRATIVE: CASE EVENT DATE: 20210324
